FAERS Safety Report 5893225-X (Version None)
Quarter: 2008Q3

REPORT INFORMATION
  Report Type: 
  Country: None (occurrence: None)
  Receive Date: 20080922
  Receipt Date: 20080922
  Transmission Date: 20090109
  Serious: Yes (Other)
  Sender: FDA-Public Use
  Company Number: None

PATIENT
  Age: 64 Year
  Sex: Male
  Weight: 80.7403 kg

DRUGS (4)
  1. INTELENCE [Suspect]
     Indication: ACQUIRED IMMUNODEFICIENCY SYNDROME
     Dosage: 100MG  TWICE DAILY PO
     Route: 048
     Dates: start: 20080728, end: 20080927
  2. PREZISTA [Concomitant]
  3. ISENTRESS [Concomitant]
  4. NORVIR [Concomitant]

REACTIONS (1)
  - INJECTION SITE HAEMORRHAGE [None]
